FAERS Safety Report 6982747-6 (Version None)
Quarter: 2010Q3

REPORT INFORMATION
  Report Type: 
  Country: None (occurrence: None)
  Receive Date: 20100914
  Receipt Date: 20100320
  Transmission Date: 20110219
  Serious: No
  Sender: FDA-Public Use
  Company Number: US-PFIZER INC-2010036159

PATIENT
  Sex: Male

DRUGS (2)
  1. LYRICA [Suspect]
     Indication: GASTRITIS HERPES
     Dosage: UNK
     Route: 048
     Dates: start: 20100201, end: 20100315
  2. OXYCODONE [Suspect]
     Indication: GASTRITIS HERPES
     Dosage: UNK
     Route: 048
     Dates: end: 20100315

REACTIONS (2)
  - DIARRHOEA [None]
  - INSOMNIA [None]
